FAERS Safety Report 12931011 (Version 1)
Quarter: 2016Q4

REPORT INFORMATION
  Report Type: Spontaneous
  Country: GB (occurrence: GB)
  Receive Date: 20161110
  Receipt Date: 20161110
  Transmission Date: 20170207
  Serious: Yes (Other)
  Sender: FDA-Public Use
  Company Number: GB-JNJFOC-20161105521

PATIENT
  Age: 75 Year
  Sex: Male
  Weight: 80 kg

DRUGS (2)
  1. BISOPROLOL FUMARATE. [Concomitant]
     Active Substance: BISOPROLOL FUMARATE
     Route: 065
  2. XARELTO [Suspect]
     Active Substance: RIVAROXABAN
     Indication: HEART RATE IRREGULAR
     Route: 048
     Dates: start: 20160610

REACTIONS (1)
  - Chromaturia [Unknown]

NARRATIVE: CASE EVENT DATE: 201606
